FAERS Safety Report 10583525 (Version 1)
Quarter: 2014Q4

REPORT INFORMATION
  Report Type: Spontaneous
  Country: US (occurrence: None)
  Receive Date: 20141112
  Receipt Date: 20141112
  Transmission Date: 20150529
  Serious: Yes (Hospitalization)
  Sender: FDA-Public Use
  Company Number: 201411024

PATIENT
  Age: 57 Year
  Sex: Male

DRUGS (1)
  1. TESTIM [Suspect]
     Active Substance: TESTOSTERONE
     Indication: BLOOD TESTOSTERONE DECREASED
     Route: 062
     Dates: start: 20110315, end: 20140225

REACTIONS (5)
  - Economic problem [None]
  - Pain [None]
  - Anxiety [None]
  - Impaired work ability [None]
  - Pulmonary embolism [None]

NARRATIVE: CASE EVENT DATE: 20130708
